FAERS Safety Report 9990812 (Version 1)
Quarter: 2014Q1

REPORT INFORMATION
  Report Type: Spontaneous
  Country: US (occurrence: US)
  Receive Date: 20140310
  Receipt Date: 20140310
  Transmission Date: 20141002
  Serious: No
  Sender: FDA-Public Use
  Company Number: US-ABBVIE-13P-163-1134704-00

PATIENT
  Sex: 0

DRUGS (1)
  1. HUMIRA [Suspect]
     Indication: PRODUCT USED FOR UNKNOWN INDICATION
     Dates: start: 201301, end: 201301

REACTIONS (5)
  - Joint stiffness [Unknown]
  - Incorrect dose administered [Unknown]
  - Clostridium difficile infection [Unknown]
  - Syncope [Unknown]
  - Injection site pain [Unknown]
